FAERS Safety Report 10256748 (Version 1)
Quarter: 2014Q2

REPORT INFORMATION
  Report Type: Report from Study
  Country: FR (occurrence: FR)
  Receive Date: 20140624
  Receipt Date: 20140624
  Transmission Date: 20141212
  Serious: Yes (Hospitalization, Other)
  Sender: FDA-Public Use
  Company Number: FR-JNJFOC-20140118514

PATIENT
  Age: 73 Year
  Sex: Male

DRUGS (5)
  1. XARELTO [Suspect]
     Indication: ATRIAL FIBRILLATION
     Route: 048
     Dates: start: 20130301, end: 20131103
  2. XARELTO [Suspect]
     Indication: CEREBROVASCULAR ACCIDENT PROPHYLAXIS
     Route: 048
     Dates: start: 20130301, end: 20131103
  3. TEMERIT [Concomitant]
     Route: 065
     Dates: start: 20090224
  4. TRIATEC [Concomitant]
     Route: 065
     Dates: start: 20130301
  5. AMIODARONE [Concomitant]
     Route: 065
     Dates: start: 20070612

REACTIONS (1)
  - Cerebrovascular accident [Recovered/Resolved with Sequelae]
